FAERS Safety Report 12589996 (Version 2)
Quarter: 2017Q1

REPORT INFORMATION
  Report Type: Spontaneous
  Country: KW (occurrence: KW)
  Receive Date: 20160725
  Receipt Date: 20170118
  Transmission Date: 20170428
  Serious: Yes (Other)
  Sender: FDA-Public Use
  Company Number: KW-MYLANLABS-2016M1030444

PATIENT

DRUGS (3)
  1. RISPERIDONE. [Suspect]
     Active Substance: RISPERIDONE
     Indication: SCHIZOPHRENIA
     Dosage: 50 MG, Q2W
     Route: 030
  2. AZATHIOPRINE. [Concomitant]
     Active Substance: AZATHIOPRINE
     Indication: MYASTHENIA GRAVIS
     Dosage: 2.5 MG/KG, QD
     Route: 065
  3. PYRIDOSTIGMINE [Concomitant]
     Active Substance: PYRIDOSTIGMINE
     Indication: MYASTHENIA GRAVIS
     Dosage: 60 MG, QID
     Route: 065

REACTIONS (2)
  - Myasthenia gravis [Recovered/Resolved]
  - Myasthenia gravis crisis [Recovered/Resolved]
